FAERS Safety Report 8160275-2 (Version None)
Quarter: 2012Q1

REPORT INFORMATION
  Report Type: 
  Country: None (occurrence: None)
  Receive Date: 20120223
  Receipt Date: 20120223
  Transmission Date: 20120608
  Serious: Yes (Hospitalization)
  Sender: FDA-Public Use
  Company Number: None

PATIENT
  Sex: Female
  Weight: 9 kg

DRUGS (1)
  1. ACETAMINOPHEN [Suspect]
     Indication: PYREXIA
     Dosage: 1 SUPPOSITORY
     Route: 054
     Dates: start: 20120217, end: 20120218

REACTIONS (6)
  - OVERDOSE [None]
  - LIVER FUNCTION TEST ABNORMAL [None]
  - INCORRECT DOSE ADMINISTERED [None]
  - ACTIVATED PARTIAL THROMBOPLASTIN TIME PROLONGED [None]
  - INTERNATIONAL NORMALISED RATIO INCREASED [None]
  - PROTHROMBIN TIME PROLONGED [None]
